FAERS Safety Report 6160651-3 (Version None)
Quarter: 2009Q2

REPORT INFORMATION
  Report Type: 
  Country: None (occurrence: None)
  Receive Date: 20090420
  Receipt Date: 20081125
  Transmission Date: 20091009
  Serious: Yes (Life-Threatening, Disabling, Other)
  Sender: FDA-Public Use
  Company Number: US-PFIZER INC-2007107662

PATIENT
  Age: 38 Year
  Sex: Female
  Weight: 61.678 kg

DRUGS (1)
  1. CHANTIX [Suspect]
     Indication: SMOKING CESSATION THERAPY
     Route: 048

REACTIONS (4)
  - AGGRESSION [None]
  - ANGER [None]
  - CRYING [None]
  - SUICIDAL IDEATION [None]
